FAERS Safety Report 12128042 (Version 2)
Quarter: 2016Q1

REPORT INFORMATION
  Report Type: Report from Study
  Country: JP (occurrence: JP)
  Receive Date: 20160229
  Receipt Date: 20160308
  Transmission Date: 20160526
  Serious: Yes (Death)
  Sender: FDA-Public Use
  Company Number: JP-009507513-1601JPN010342

PATIENT
  Age: 78 Year
  Sex: Male
  Weight: 60 kg

DRUGS (9)
  1. RECOMODULIN [Concomitant]
     Active Substance: THROMBOMODULIN ALFA
     Indication: SEPSIS
     Dosage: 2 DF, QD
     Route: 041
     Dates: start: 20140404, end: 20140409
  2. FUNGUARD [Concomitant]
     Active Substance: MICAFUNGIN SODIUM
     Indication: SEPSIS
     Dosage: 150 MG, QD
     Route: 041
     Dates: start: 20140403, end: 20140407
  3. MAXIPIME [Concomitant]
     Active Substance: CEFEPIME HYDROCHLORIDE
     Indication: SEPSIS
     Dosage: 1 G, QID
     Route: 041
     Dates: start: 20140402, end: 20140407
  4. FINIBAX [Concomitant]
     Active Substance: DORIPENEM MONOHYDRATE
     Indication: INFECTION
     Dosage: 1 G, TID
     Route: 041
     Dates: start: 20140408, end: 20140410
  5. BAKTAR [Concomitant]
     Active Substance: SULFAMETHOXAZOLE\TRIMETHOPRIM
     Indication: SEPSIS
     Dosage: 400 MG, QD
     Route: 048
     Dates: start: 20140404, end: 20140408
  6. ANTHROBIN P [Concomitant]
     Active Substance: ANTITHROMBIN III HUMAN
     Indication: SEPSIS
     Dosage: 2 DF, QD
     Route: 041
     Dates: start: 20140404, end: 20140409
  7. PREDONINE [Concomitant]
     Active Substance: PREDNISOLONE\PREDNISOLONE ACETATE\PREDNISOLONE SODIUM SUCCINATE
     Indication: SEPTIC SHOCK
     Dosage: 25 MG, QD
     Route: 048
     Dates: start: 20140404, end: 20140408
  8. CUBICIN [Suspect]
     Active Substance: DAPTOMYCIN
     Indication: SEPSIS
     Dosage: 5.8 MG/KG, 1/1 DAY
     Route: 041
     Dates: start: 20140407, end: 20140410
  9. GRAN [Concomitant]
     Active Substance: FILGRASTIM
     Indication: BONE MARROW FAILURE
     Dosage: 75 MICROGRAM, QD
     Route: 051
     Dates: start: 20140403, end: 20140407

REACTIONS (2)
  - Death [Fatal]
  - Drug ineffective [Unknown]

NARRATIVE: CASE EVENT DATE: 20140408
